FAERS Safety Report 14077232 (Version 2)
Quarter: 2017Q4

REPORT INFORMATION
  Report Type: Spontaneous
  Country: BE (occurrence: BE)
  Receive Date: 20171012
  Receipt Date: 20171021
  Transmission Date: 20180321
  Serious: Yes (Other)
  Sender: FDA-Public Use
  Company Number: BE-ROCHE-2006663

PATIENT
  Sex: Male

DRUGS (7)
  1. XOLAIR [Suspect]
     Active Substance: OMALIZUMAB
     Dosage: 3 INJECTIONS OF 150 MG
     Route: 058
     Dates: start: 20170411
  2. XOLAIR [Suspect]
     Active Substance: OMALIZUMAB
     Dosage: 3 INJECTIONS OF 150 MG
     Route: 058
     Dates: start: 20170516
  3. XOLAIR [Suspect]
     Active Substance: OMALIZUMAB
     Dosage: 3 INJECTIONS OF 150 MG
     Route: 058
     Dates: start: 20170207
  4. XOLAIR [Suspect]
     Active Substance: OMALIZUMAB
     Indication: CHRONIC SPONTANEOUS URTICARIA
     Dosage: UNK
     Route: 058
     Dates: start: 20160614
  5. XOLAIR [Suspect]
     Active Substance: OMALIZUMAB
     Route: 058
     Dates: start: 20170613
  6. XOLAIR [Suspect]
     Active Substance: OMALIZUMAB
     Dosage: 3 INJECTIONS OF 150 MG
     Route: 058
     Dates: start: 20170110
  7. XOLAIR [Suspect]
     Active Substance: OMALIZUMAB
     Dosage: 3 INJECTIONS OF 150 MG
     Route: 058
     Dates: start: 20170307

REACTIONS (3)
  - Therapy non-responder [Unknown]
  - Off label use [Unknown]
  - Age-related macular degeneration [Not Recovered/Not Resolved]

NARRATIVE: CASE EVENT DATE: 2017
